FAERS Safety Report 7818070-7 (Version None)
Quarter: 2011Q4

REPORT INFORMATION
  Report Type: 
  Country: None (occurrence: None)
  Receive Date: 20111017
  Receipt Date: 20111006
  Transmission Date: 20120403
  Serious: Yes (Other)
  Sender: FDA-Public Use
  Company Number: BR-SANOFI-AVENTIS-2011SA065681

PATIENT
  Age: 71 Year
  Sex: Male
  Weight: 58 kg

DRUGS (4)
  1. LANTUS [Suspect]
     Indication: TYPE 2 DIABETES MELLITUS
     Route: 058
  2. AUTOPEN 24 [Suspect]
  3. CAPTOPRIL [Concomitant]
     Indication: HYPERTENSION
     Route: 048
  4. GLYBURIDE [Concomitant]
     Route: 048

REACTIONS (10)
  - HYPERTENSION [None]
  - VERTIGO [None]
  - URINARY TRACT INFECTION [None]
  - CHILLS [None]
  - HYPOGLYCAEMIA [None]
  - TREMOR [None]
  - PARKINSON'S DISEASE [None]
  - PROSTATIC DISORDER [None]
  - HYPERGLYCAEMIA [None]
  - HYPERHIDROSIS [None]
